FAERS Safety Report 4863381-0 (Version None)
Quarter: 2005Q4

REPORT INFORMATION
  Report Type: 
  Country: None (occurrence: None)
  Receive Date: 20051222
  Receipt Date: 20041108
  Transmission Date: 20060501
  Serious: No
  Sender: FDA-Public Use
  Company Number: US-GLAXOSMITHKLINE-A0533152A

PATIENT
  Sex: Female

DRUGS (2)
  1. FLONASE [Suspect]
     Dosage: 2SPR PER DAY
     Route: 045
     Dates: start: 20041001
  2. ANTIBIOTIC [Concomitant]

REACTIONS (3)
  - EAR DISCOMFORT [None]
  - EAR PAIN [None]
  - PHARYNGOLARYNGEAL PAIN [None]
